FAERS Safety Report 23721991 (Version 1)
Quarter: 2024Q2

REPORT INFORMATION
  Report Type: Spontaneous
  Country: US (occurrence: US)
  Receive Date: 20240409
  Receipt Date: 20240409
  Transmission Date: 20240716
  Serious: Yes (Life-Threatening, Hospitalization, Other)
  Sender: FDA-Public Use
  Company Number: US-Accord-417470

PATIENT
  Age: 76 Year
  Sex: Male

DRUGS (4)
  1. METHOTREXATE [Suspect]
     Active Substance: METHOTREXATE
     Indication: Rheumatoid arthritis
     Route: 048
  2. ALLOPURINOL [Concomitant]
     Active Substance: ALLOPURINOL
  3. PREDNISONE [Concomitant]
     Active Substance: PREDNISONE
     Indication: Rheumatoid arthritis
  4. FOLIC ACID [Concomitant]
     Active Substance: FOLIC ACID
     Indication: Rheumatoid arthritis

REACTIONS (8)
  - Myelosuppression [Recovered/Resolved]
  - Immunosuppression [Recovered/Resolved]
  - Febrile neutropenia [Recovered/Resolved]
  - Acute kidney injury [Recovered/Resolved]
  - Drug intolerance [Unknown]
  - Stomatitis [Recovering/Resolving]
  - Mouth ulceration [Recovering/Resolving]
  - Oral candidiasis [Recovering/Resolving]
